FAERS Safety Report 8179886-3 (Version None)
Quarter: 2012Q1

REPORT INFORMATION
  Report Type: 
  Country: None (occurrence: None)
  Receive Date: 20120229
  Receipt Date: 20120229
  Transmission Date: 20120608
  Serious: Yes (Hospitalization)
  Sender: FDA-Public Use
  Company Number: None

PATIENT
  Age: 72 Year
  Sex: Male

DRUGS (3)
  1. VANCOMYCIN [Suspect]
     Indication: STAPHYLOCOCCAL BACTERAEMIA
     Dates: start: 20110905, end: 20110923
  2. VANCOMYCIN [Suspect]
     Indication: ACINETOBACTER BACTERAEMIA
     Dates: start: 20110905, end: 20110923
  3. RANITIDINE [Suspect]
     Indication: PROPHYLAXIS AGAINST GASTROINTESTINAL ULCER
     Dosage: MG
     Dates: start: 20110905, end: 20110923

REACTIONS (15)
  - URINARY RETENTION [None]
  - DYSPHAGIA [None]
  - SCHIZOPHRENIA [None]
  - OESOPHAGEAL STENOSIS [None]
  - STAPHYLOCOCCAL BACTERAEMIA [None]
  - ACUTE RESPIRATORY FAILURE [None]
  - OESOPHAGITIS [None]
  - DECUBITUS ULCER [None]
  - ACINETOBACTER BACTERAEMIA [None]
  - GASTROOESOPHAGEAL REFLUX DISEASE [None]
  - IRON DEFICIENCY ANAEMIA [None]
  - NEUTROPENIA [None]
  - PYREXIA [None]
  - PARKINSONISM [None]
  - LEUKOPENIA [None]
